FAERS Safety Report 24747426 (Version 1)
Quarter: 2024Q4

REPORT INFORMATION
  Report Type: Spontaneous
  Country: US (occurrence: US)
  Receive Date: 20241218
  Receipt Date: 20241218
  Transmission Date: 20250114
  Serious: No
  Sender: BAYER HEALTHCARE LLC
  Company Number: US-BAYER-2024A176460

PATIENT
  Sex: Female

DRUGS (2)
  1. CLARITIN [Suspect]
     Active Substance: LORATADINE
     Indication: Multiple allergies
     Dosage: 10 MG
     Route: 048
     Dates: start: 2022
  2. CLARITIN [Suspect]
     Active Substance: LORATADINE
     Indication: Inflammation

REACTIONS (1)
  - Drug effective for unapproved indication [Unknown]
